FAERS Safety Report 7598461-2 (Version None)
Quarter: 2011Q3

REPORT INFORMATION
  Report Type: 
  Country: None (occurrence: None)
  Receive Date: 20110708
  Receipt Date: 20110630
  Transmission Date: 20111222
  Serious: Yes (Other)
  Sender: FDA-Public Use
  Company Number: FR-ELI_LILLY_AND_COMPANY-FR201106008746

PATIENT
  Sex: Male

DRUGS (8)
  1. EFFIENT [Suspect]
     Indication: STENT PLACEMENT
     Dosage: 10 MG, QD
     Route: 048
     Dates: start: 20101001, end: 20110525
  2. APROVEL [Concomitant]
  3. ASPEGIC 325 [Concomitant]
  4. PRAVASTATIN [Concomitant]
  5. SPIRIVA [Concomitant]
     Dosage: UNK
  6. PROCORALAN [Concomitant]
  7. MONICOR [Concomitant]
  8. AMLODIPINE [Concomitant]

REACTIONS (1)
  - LICHEN PLANUS [None]
